FAERS Safety Report 16548421 (Version 1)
Quarter: 2019Q3

REPORT INFORMATION
  Report Type: Spontaneous
  Country: JP (occurrence: JP)
  Receive Date: 20190709
  Receipt Date: 20190709
  Transmission Date: 20191004
  Serious: Yes (Hospitalization)
  Sender: FDA-Public Use
  Company Number: JP-MYE-2019M1062146AA

PATIENT
  Sex: Male

DRUGS (2)
  1. MENDON CAPSULES 7.5MG [Suspect]
     Active Substance: CLORAZEPATE DIPOTASSIUM
     Indication: HYPERVENTILATION
     Route: 048
  2. MENDON CAPSULES 7.5MG [Suspect]
     Active Substance: CLORAZEPATE DIPOTASSIUM
     Indication: PANIC DISORDER

REACTIONS (1)
  - Hospitalisation [Unknown]
